FAERS Safety Report 16222196 (Version 3)
Quarter: 2019Q2

REPORT INFORMATION
  Report Type: Spontaneous
  Country: IR (occurrence: IR)
  Receive Date: 20190422
  Receipt Date: 20190430
  Transmission Date: 20190711
  Serious: Yes (Other)
  Sender: FDA-Public Use
  Company Number: PHHY2019IR088623

PATIENT
  Age: 70 Year
  Sex: Female

DRUGS (4)
  1. PREDNISOLONE. [Suspect]
     Active Substance: PREDNISOLONE
     Indication: PRODUCT USED FOR UNKNOWN INDICATION
     Route: 048
     Dates: start: 20190411
  2. TEGRETOL [Suspect]
     Active Substance: CARBAMAZEPINE
     Indication: PRODUCT USED FOR UNKNOWN INDICATION
     Dosage: 0.5 DF, QD
     Route: 048
     Dates: start: 20190316
  3. TEGRETOL [Suspect]
     Active Substance: CARBAMAZEPINE
     Dosage: 1 DF, QD
     Route: 048
  4. TEGRETOL [Suspect]
     Active Substance: CARBAMAZEPINE
     Dosage: 1/5 TABLET, QD IN THIRD WEEK
     Route: 048
     Dates: end: 20190410

REACTIONS (8)
  - Pruritus [Unknown]
  - Dyspnoea [Recovering/Resolving]
  - Loss of consciousness [Recovering/Resolving]
  - Urticaria [Not Recovered/Not Resolved]
  - Rash [Not Recovered/Not Resolved]
  - Chills [Unknown]
  - Erythema [Not Recovered/Not Resolved]
  - Pyrexia [Recovering/Resolving]

NARRATIVE: CASE EVENT DATE: 20190316
